FAERS Safety Report 11621976 (Version 1)
Quarter: 2015Q4

REPORT INFORMATION
  Report Type: Spontaneous
  Country: US (occurrence: US)
  Receive Date: 20151013
  Receipt Date: 20151013
  Transmission Date: 20160304
  Serious: No
  Sender: FDA-Public Use
  Company Number: US-JNJFOC-20150913228

PATIENT
  Age: 61 Year
  Sex: Male
  Weight: 108.86 kg

DRUGS (3)
  1. VISINE [Suspect]
     Active Substance: TETRAHYDROZOLINE HYDROCHLORIDE
     Route: 047
  2. MULTIVITAMINS [Concomitant]
     Active Substance: VITAMINS
     Indication: ROUTINE HEALTH MAINTENANCE
     Route: 047
  3. VISINE [Suspect]
     Active Substance: TETRAHYDROZOLINE HYDROCHLORIDE
     Indication: REMOVAL OF FOREIGN BODY FROM EYE
     Dosage: 1 OR 2 DROPS, JUST AS NEEDED 1X OR 2X PER YEAR
     Route: 047

REACTIONS (2)
  - Eye irritation [Recovered/Resolved]
  - Product use issue [Recovered/Resolved]
